FAERS Safety Report 8318554-1 (Version None)
Quarter: 2012Q2

REPORT INFORMATION
  Report Type: 
  Country: None (occurrence: None)
  Receive Date: 20120427
  Receipt Date: 20120425
  Transmission Date: 20120825
  Serious: Yes (Other)
  Sender: FDA-Public Use
  Company Number: US-ELI_LILLY_AND_COMPANY-US201204009609

PATIENT
  Sex: Female

DRUGS (9)
  1. COUMADIN [Concomitant]
  2. ZESTRIL [Concomitant]
     Dosage: UNK
  3. NITROSTAT [Concomitant]
  4. POTASSIUM CHLORIDE [Concomitant]
  5. EFFIENT [Suspect]
     Indication: STENT PLACEMENT
     Dosage: 10 MG, UNK
  6. CLINDAMYCIN [Concomitant]
  7. HYDROCODONE [Concomitant]
     Dosage: UNK, PRN
  8. ESTROGEN [Concomitant]
     Route: 062
  9. MULTAQ [Concomitant]

REACTIONS (2)
  - CARDIAC PACEMAKER INSERTION [None]
  - IMPLANT SITE INFECTION [None]
